FAERS Safety Report 10191255 (Version 1)
Quarter: 2014Q2

REPORT INFORMATION
  Report Type: Spontaneous
  Country: US (occurrence: US)
  Receive Date: 20140523
  Receipt Date: 20140523
  Transmission Date: 20141212
  Serious: Yes (Other)
  Sender: FDA-Public Use
  Company Number: CHPA2014US006734

PATIENT
  Age: 51 Year
  Sex: Female

DRUGS (4)
  1. IBUPROFEN TABLETS USP [Suspect]
     Indication: INJURY
     Dosage: 500 MG, UNK
     Route: 065
  2. VOLTAREN GEL [Suspect]
     Indication: PAIN
     Dosage: UNK
     Route: 061
     Dates: start: 201403
  3. VOLTAREN GEL [Suspect]
     Indication: OFF LABEL USE
  4. LIDOCAINE [Concomitant]
     Route: 065

REACTIONS (3)
  - Haematemesis [Recovered/Resolved]
  - Oesophagitis [Unknown]
  - Therapeutic response changed [Unknown]
